FAERS Safety Report 4462046-7 (Version None)
Quarter: 2004Q3

REPORT INFORMATION
  Report Type: 
  Country: None (occurrence: None)
  Receive Date: 20040924
  Receipt Date: 20040914
  Transmission Date: 20050211
  Serious: No
  Sender: FDA-Public Use
  Company Number: 2004AC00321

PATIENT
  Age: 71 Year
  Sex: Male

DRUGS (8)
  1. LIDOCAINE [Suspect]
     Indication: LOCAL ANAESTHESIA
     Dosage: 2 ML EYE
  2. LIDOCAINE [Suspect]
     Indication: LOCAL ANAESTHESIA
     Dosage: NI
  3. CIPROFLOXACIN [Concomitant]
  4. CYCLOPENTOLATE HCL [Concomitant]
  5. TROPICAMIDE [Concomitant]
  6. POVIDONE IODINE [Concomitant]
  7. SODIUM HYALURONATE [Concomitant]
  8. BACITRACIN OPHTHALMIC OINTMENT [Concomitant]

REACTIONS (4)
  - ANAESTHETIC COMPLICATION [None]
  - CONJUNCTIVAL HYPERAEMIA [None]
  - PUPILLARY DISORDER [None]
  - RETINAL ARTERY OCCLUSION [None]
